FAERS Safety Report 6527961-9 (Version None)
Quarter: 2010Q1

REPORT INFORMATION
  Report Type: 
  Country: None (occurrence: None)
  Receive Date: 20100105
  Receipt Date: 20100105
  Transmission Date: 20100710
  Serious: Yes (Life-Threatening, Hospitalization)
  Sender: FDA-Public Use
  Company Number: None

PATIENT
  Age: 73 Year
  Sex: Female
  Weight: 74.3899 kg

DRUGS (2)
  1. LAMOTRIGINE [Suspect]
     Indication: BIPOLAR DISORDER
     Dosage: 100 MG DAILY PO
     Route: 048
     Dates: start: 20090919, end: 20091125
  2. LAMOTRIGINE [Suspect]
     Indication: BIPOLAR DISORDER
     Dosage: 25-75 MG -TITRATION- DAILY PO
     Route: 048
     Dates: start: 20090919, end: 20091125

REACTIONS (13)
  - CELLULITIS [None]
  - CULTURE WOUND POSITIVE [None]
  - ESCHERICHIA INFECTION [None]
  - GINGIVAL SWELLING [None]
  - NEUTROPENIA [None]
  - PULMONARY OEDEMA [None]
  - PYREXIA [None]
  - RENAL FAILURE ACUTE [None]
  - RESPIRATORY DISORDER [None]
  - SEPSIS [None]
  - SOFT TISSUE NECROSIS [None]
  - TONGUE DISORDER [None]
  - WOUND INFECTION PSEUDOMONAS [None]
